FAERS Safety Report 6973979-1 (Version None)
Quarter: 2010Q3

REPORT INFORMATION
  Report Type: 
  Country: None (occurrence: None)
  Receive Date: 20100909
  Receipt Date: 20100831
  Transmission Date: 20110219
  Serious: Yes (Death, Hospitalization)
  Sender: FDA-Public Use
  Company Number: PH-BAXTER-2010BH022927

PATIENT
  Age: 37 Year
  Sex: Male

DRUGS (1)
  1. DIANEAL [Suspect]
     Indication: PERITONEAL DIALYSIS
     Route: 033
     Dates: start: 20080504

REACTIONS (4)
  - BRAIN HERNIATION [None]
  - FALL [None]
  - INJURY [None]
  - SUBDURAL HAEMATOMA [None]
